FAERS Safety Report 22067999 (Version 1)
Quarter: 2023Q1

REPORT INFORMATION
  Report Type: Spontaneous
  Country: GB (occurrence: GB)
  Receive Date: 20230307
  Receipt Date: 20230307
  Transmission Date: 20230418
  Serious: Yes (Hospitalization)
  Sender: FDA-Public Use
  Company Number: None

PATIENT
  Age: 83 Year

DRUGS (1)
  1. TADALAFIL [Suspect]
     Active Substance: TADALAFIL
     Indication: Product used for unknown indication
     Dosage: TAKING REGULARLY FOR THE FIRST 4 DAYS OF THE MONTH AND THEN WILL  NOT TAKE FOR THE REST OF THE MONTH
     Route: 065

REACTIONS (1)
  - Fall [Recovered/Resolved]
